FAERS Safety Report 5381759-6 (Version None)
Quarter: 2007Q3

REPORT INFORMATION
  Report Type: 
  Country: None (occurrence: None)
  Receive Date: 20070703
  Receipt Date: 20070703
  Transmission Date: 20080115
  Serious: Yes (Hospitalization)
  Sender: FDA-Public Use
  Company Number: None

PATIENT
  Age: 75 Year
  Sex: Female

DRUGS (6)
  1. HALFLYTELY [Suspect]
  2. METOPROLOL SUCCINATE [Concomitant]
  3. CLOPIDOGREL [Concomitant]
  4. PRAVASTATIN [Concomitant]
  5. ENALAPRIL MALEATE [Concomitant]
  6. ASPIRIN [Concomitant]

REACTIONS (1)
  - COLITIS ISCHAEMIC [None]
